FAERS Safety Report 12236076 (Version 1)
Quarter: 2016Q2

REPORT INFORMATION
  Report Type: Spontaneous
  Country: US (occurrence: US)
  Receive Date: 20160404
  Receipt Date: 20160404
  Transmission Date: 20160815
  Serious: Yes (Hospitalization)
  Sender: FDA-Public Use
  Company Number: US-BAYER-2016-063667

PATIENT
  Age: 18 Year
  Sex: Female
  Weight: 61.23 kg

DRUGS (1)
  1. BEYAZ [Suspect]
     Active Substance: DROSPIRENONE\ETHINYL ESTRADIOL\LEVOMEFOLATE CALCIUM
     Indication: ACNE
     Dosage: UNK
     Route: 048
     Dates: start: 201411, end: 20150707

REACTIONS (4)
  - Aphasia [Recovered/Resolved]
  - Confusional state [Recovered/Resolved]
  - Transient ischaemic attack [Recovered/Resolved]
  - Hypoaesthesia [Recovered/Resolved]

NARRATIVE: CASE EVENT DATE: 20150620
